FAERS Safety Report 8837867 (Version 1)
Quarter: 2012Q4

REPORT INFORMATION
  Report Type: 
  Country: DE (occurrence: DE)
  Receive Date: 20121012
  Receipt Date: 20121012
  Transmission Date: 20130627
  Serious: Yes (Other)
  Sender: FDA-Public Use
  Company Number: DE-MYLANLABS-2012S1020262

PATIENT
  Age: 80 Year
  Sex: Male

DRUGS (2)
  1. AZATHIOPRINE [Suspect]
     Indication: MYASTHENIA GRAVIS
     Dosage: 40 mg/day
     Route: 065
  2. PREDNISOLONE [Suspect]
     Indication: MYASTHENIA GRAVIS
     Dosage: 5 mg/day
     Route: 065

REACTIONS (1)
  - Kaposi^s sarcoma [Recovering/Resolving]
